FAERS Safety Report 5086755-4 (Version None)
Quarter: 2006Q3

REPORT INFORMATION
  Report Type: 
  Country: None (occurrence: None)
  Receive Date: 20060823
  Receipt Date: 20060814
  Transmission Date: 20061208
  Serious: Yes (Hospitalization)
  Sender: FDA-Public Use
  Company Number: PHBS2006CH12162

PATIENT
  Age: 78 Year
  Sex: Female

DRUGS (8)
  1. KCL RETARD ZYMA [Suspect]
     Dosage: 3 DF/DAY
     Dates: end: 22051227
  2. COVERSUM [Suspect]
     Dosage: 4 MG/DAY
     Dates: end: 20051227
  3. LASILACTONE [Suspect]
     Dosage: FURO 20 /SPIRO 50 MG/DAY
     Dates: end: 20051227
  4. ASPIRIN [Suspect]
     Dosage: 100 MG/DAY
  5. PLAVIX [Concomitant]
  6. TEMESTA [Concomitant]
  7. PANTOZOL [Concomitant]
  8. ISOPTIN [Concomitant]
     Dosage: 240 MG/DAY

REACTIONS (7)
  - ACIDOSIS [None]
  - BLOOD CREATININE INCREASED [None]
  - DEPRESSED LEVEL OF CONSCIOUSNESS [None]
  - HYPERKALAEMIA [None]
  - MALAISE [None]
  - RENAL FAILURE CHRONIC [None]
  - VOMITING [None]
